FAERS Safety Report 14507629 (Version 2)
Quarter: 2018Q1

REPORT INFORMATION
  Report Type: Spontaneous
  Country: US (occurrence: US)
  Receive Date: 20180208
  Receipt Date: 20180319
  Transmission Date: 20180509
  Serious: No
  Sender: FDA-Public Use
  Company Number: US-ACTELION-A-NJ2018-167428

PATIENT
  Age: 58 Year
  Sex: Female

DRUGS (1)
  1. VALCHLOR [Suspect]
     Active Substance: MECHLORETHAMINE
     Indication: MYCOSIS FUNGOIDES
     Dosage: UNK
     Route: 061
     Dates: start: 20180126

REACTIONS (6)
  - Application site irritation [Unknown]
  - Application site discharge [Unknown]
  - Skin hyperpigmentation [Unknown]
  - Application site exfoliation [Unknown]
  - Application site erythema [Unknown]
  - Application site discolouration [Unknown]
